FAERS Safety Report 14387953 (Version 2)
Quarter: 2018Q2

REPORT INFORMATION
  Report Type: Spontaneous
  Country: US (occurrence: US)
  Receive Date: 20180115
  Receipt Date: 20180607
  Transmission Date: 20180711
  Serious: Yes (Other)
  Sender: FDA-Public Use
  Company Number: US-SA-2017SA201341

PATIENT
  Age: 63 Year
  Sex: Female
  Weight: 90 kg

DRUGS (5)
  1. CRESTOR [Concomitant]
     Active Substance: ROSUVASTATIN CALCIUM
     Dosage: UNK UNK,UNK
     Dates: start: 200910, end: 2011
  2. TAXOTERE [Suspect]
     Active Substance: DOCETAXEL
     Dosage: 160 MG,Q3W
     Route: 051
     Dates: start: 20100423, end: 20100423
  3. TAXOTERE [Suspect]
     Active Substance: DOCETAXEL
     Indication: BREAST CANCER
     Dosage: 160 MG,Q3W
     Route: 051
     Dates: start: 20100108, end: 20100108
  4. NEOSAR [Concomitant]
     Active Substance: CYCLOPHOSPHAMIDE
     Indication: CHEMOTHERAPY
     Dosage: UNK UNK, UNK
  5. LEVOTHYROXINE. [Concomitant]
     Active Substance: LEVOTHYROXINE
     Dosage: UNK UNK,UNK
     Dates: start: 20091019

REACTIONS (6)
  - Emotional distress [Unknown]
  - Pain [Unknown]
  - Alopecia [Recovering/Resolving]
  - Anxiety [Unknown]
  - Psychological trauma [Unknown]
  - Impaired quality of life [Unknown]

NARRATIVE: CASE EVENT DATE: 201010
